FAERS Safety Report 19493504 (Version 2)
Quarter: 2021Q3

REPORT INFORMATION
  Report Type: Spontaneous
  Country: JP (occurrence: JP)
  Receive Date: 20210705
  Receipt Date: 20210806
  Transmission Date: 20211014
  Serious: Yes (Death, Hospitalization)
  Sender: FDA-Public Use
  Company Number: JP-ROCHE-2863306

PATIENT
  Age: 63 Year
  Sex: Female
  Weight: 46 kg

DRUGS (8)
  1. ABRAXANE [Suspect]
     Active Substance: PACLITAXEL
     Route: 041
     Dates: start: 20210622, end: 20210625
  2. ABRAXANE [Suspect]
     Active Substance: PACLITAXEL
     Indication: TRIPLE NEGATIVE BREAST CANCER
     Route: 041
     Dates: start: 20210302, end: 20210420
  3. GRANISETRON [Concomitant]
     Active Substance: GRANISETRON
     Dosage: 3 UNK
     Route: 041
     Dates: start: 20210302, end: 20210426
  4. ABRAXANE [Suspect]
     Active Substance: PACLITAXEL
     Route: 041
     Dates: start: 20210610, end: 20210610
  5. GRANISETRON [Concomitant]
     Active Substance: GRANISETRON
     Dosage: 3 UNK
     Route: 041
     Dates: start: 20210622, end: 20210625
  6. GRANISETRON [Concomitant]
     Active Substance: GRANISETRON
     Dosage: 3 UNK
     Route: 041
     Dates: start: 20210510, end: 20210510
  7. TECENTRIQ [Suspect]
     Active Substance: ATEZOLIZUMAB
     Indication: TRIPLE NEGATIVE BREAST CANCER
     Route: 041
  8. TECENTRIQ [Suspect]
     Active Substance: ATEZOLIZUMAB
     Route: 041
     Dates: start: 20210622, end: 20210625

REACTIONS (3)
  - Decreased appetite [Unknown]
  - Altered state of consciousness [Fatal]
  - Restlessness [Unknown]

NARRATIVE: CASE EVENT DATE: 202105
